FAERS Safety Report 9455387 (Version 2)
Quarter: 2013Q3

REPORT INFORMATION
  Report Type: Report from Study
  Country: CA (occurrence: CA)
  Receive Date: 20130813
  Receipt Date: 20130814
  Transmission Date: 20140515
  Serious: Yes (Other)
  Sender: FDA-Public Use
  Company Number: PHHY2013CA085803

PATIENT
  Age: 75 Year
  Sex: Female

DRUGS (2)
  1. FOSAVANCE [Suspect]
     Indication: OSTEOPOROSIS
     Dosage: 70/5600 MG
     Dates: start: 20090626
  2. TWYNSTA [Concomitant]
     Dosage: 80/5 MG, UNK

REACTIONS (2)
  - Foot fracture [Recovered/Resolved]
  - Injury [Recovered/Resolved]
